FAERS Safety Report 7072861-1 (Version None)
Quarter: 2010Q4

REPORT INFORMATION
  Report Type: 
  Country: None (occurrence: None)
  Receive Date: 20101029
  Receipt Date: 20100322
  Transmission Date: 20110411
  Serious: No
  Sender: FDA-Public Use
  Company Number: A0851400A

PATIENT
  Age: 57 Year
  Sex: Female

DRUGS (10)
  1. ADVAIR DISKUS 100/50 [Suspect]
     Indication: ASTHMA
     Dosage: 1PUFF TWICE PER DAY
     Route: 055
     Dates: start: 20100311, end: 20100320
  2. AMOXICILLIN AND CLAVULANATE POTASSIUM [Concomitant]
  3. CLOTRIMAZOLE [Concomitant]
  4. SINGULAIR [Concomitant]
  5. FLUTICASONE PROPIONATE [Concomitant]
     Route: 045
  6. LIPITOR [Concomitant]
  7. RANITIDINE [Concomitant]
  8. ANTARA (MICRONIZED) [Concomitant]
  9. GABAPENTIN [Concomitant]
  10. INSULIN [Concomitant]

REACTIONS (2)
  - CANDIDIASIS [None]
  - RASH [None]
